FAERS Safety Report 6261309-2 (Version None)
Quarter: 2009Q3

REPORT INFORMATION
  Report Type: 
  Country: None (occurrence: None)
  Receive Date: 20090709
  Receipt Date: 20090414
  Transmission Date: 20100115
  Serious: No
  Sender: FDA-Public Use
  Company Number: US-KINGPHARMUSA00001-K200900446

PATIENT
  Sex: Female
  Weight: 74.83 kg

DRUGS (1)
  1. LEVOXYL [Suspect]
     Indication: HYPOTHYROIDISM
     Dosage: UNK, QD
     Route: 048
     Dates: start: 20090101

REACTIONS (3)
  - DYSPHAGIA [None]
  - ORAL DISCOMFORT [None]
  - SENSATION OF FOREIGN BODY [None]
